FAERS Safety Report 9977837 (Version 1)
Quarter: 2014Q1

REPORT INFORMATION
  Report Type: Report from Study
  Country: US (occurrence: US)
  Receive Date: 20140306
  Receipt Date: 20140306
  Transmission Date: 20141002
  Serious: No
  Sender: FDA-Public Use
  Company Number: US-ABBVIE-13P-163-1161717-00

PATIENT
  Age: 47 Year
  Sex: Female

DRUGS (13)
  1. HUMIRA [Suspect]
     Indication: CROHN^S DISEASE
     Dates: start: 20130722, end: 20130722
  2. HUMIRA [Suspect]
     Dates: start: 20130805, end: 20130805
  3. HUMIRA [Suspect]
     Dosage: ON THE 5TH AND 20TH OF EACH MONTH
     Dates: start: 20130820, end: 20130820
  4. HUMIRA [Suspect]
  5. AZATHIOPRINE [Concomitant]
     Indication: CROHN^S DISEASE
  6. TRAZODONE [Concomitant]
     Indication: INSOMNIA
     Dosage: AT NIGHT
  7. VITAMIN D3 [Concomitant]
     Indication: PRODUCT USED FOR UNKNOWN INDICATION
     Dosage: 1000 IU DAILY
  8. COMPAZINE [Concomitant]
     Indication: NAUSEA
  9. IMODIUM [Concomitant]
     Indication: DIARRHOEA
  10. PERCOCET [Concomitant]
     Indication: PAIN
     Dosage: AS NEEDED
  11. PROAIR [Concomitant]
     Indication: PRODUCT USED FOR UNKNOWN INDICATION
  12. SLOW VENT INHALER [Concomitant]
     Indication: PRODUCT USED FOR UNKNOWN INDICATION
  13. RANTIDINE [Concomitant]
     Indication: GASTROOESOPHAGEAL REFLUX DISEASE

REACTIONS (2)
  - Memory impairment [Not Recovered/Not Resolved]
  - Dyspnoea exertional [Not Recovered/Not Resolved]
